FAERS Safety Report 23792306 (Version 1)
Quarter: 2024Q2

REPORT INFORMATION
  Report Type: Spontaneous
  Country: CN (occurrence: CN)
  Receive Date: 20240429
  Receipt Date: 20240429
  Transmission Date: 20240716
  Serious: Yes (Life-Threatening)
  Sender: FDA-Public Use
  Company Number: CN-PFIZER INC-PV202400054719

PATIENT
  Age: 63 Year
  Sex: Female

DRUGS (2)
  1. IBRANCE [Suspect]
     Active Substance: PALBOCICLIB
     Indication: Neoplasm
     Dosage: 125 MG, 1X/DAY
     Route: 048
     Dates: start: 20240322, end: 20240411
  2. LETROZOLE [Suspect]
     Active Substance: LETROZOLE
     Indication: Neoplasm
     Dosage: 2.5 MG, 1X/DAY
     Route: 048
     Dates: start: 20240322, end: 20240422

REACTIONS (4)
  - Granulocyte count decreased [Unknown]
  - White blood cell count decreased [Unknown]
  - Haemoglobin decreased [Unknown]
  - Platelet count decreased [Unknown]

NARRATIVE: CASE EVENT DATE: 20240419
